FAERS Safety Report 6139504-2 (Version None)
Quarter: 2009Q2

REPORT INFORMATION
  Report Type: 
  Country: None (occurrence: None)
  Receive Date: 20090401
  Receipt Date: 20090326
  Transmission Date: 20091009
  Serious: Yes (Hospitalization, Other)
  Sender: FDA-Public Use
  Company Number: NL-BAYER-200913524GPV

PATIENT
  Age: 75 Year
  Sex: Male

DRUGS (5)
  1. NEXAVAR [Suspect]
     Indication: HEPATIC NEOPLASM MALIGNANT
     Dosage: TOTAL DAILY DOSE: 400 MG  UNIT DOSE: 200 MG
     Route: 048
     Dates: start: 20090227
  2. NEXAVAR [Suspect]
     Dosage: TOTAL DAILY DOSE: 200 MG
     Route: 048
     Dates: start: 20090126, end: 20090227
  3. LANTUS [Concomitant]
     Indication: DIABETES MELLITUS
     Dosage: TOTAL DAILY DOSE: 44 IU
     Route: 058
  4. MAGNESIUM SULFATE [Concomitant]
     Indication: DRUG USE FOR UNKNOWN INDICATION
     Route: 065
  5. ANTIBIOTIC MEDICATION (NOS) [Concomitant]
     Indication: DRUG USE FOR UNKNOWN INDICATION
     Dosage: NOS
     Route: 065
     Dates: end: 20090301

REACTIONS (7)
  - DIARRHOEA [None]
  - DYSPHONIA [None]
  - FATIGUE [None]
  - HYPOGLYCAEMIA [None]
  - INFLAMMATION [None]
  - NAUSEA [None]
  - RASH [None]
